FAERS Safety Report 8586891-1 (Version None)
Quarter: 2012Q3

REPORT INFORMATION
  Report Type: 
  Country: None (occurrence: None)
  Receive Date: 20120810
  Receipt Date: 20120807
  Transmission Date: 20120928
  Serious: Yes (Death, Other)
  Sender: FDA-Public Use
  Company Number: US-ELI_LILLY_AND_COMPANY-US201111006815

PATIENT
  Sex: Female

DRUGS (2)
  1. FORTEO [Suspect]
     Dosage: 20 UG, QD
     Route: 065
  2. FORTEO [Suspect]
     Indication: OSTEOPENIA
     Dosage: 40 MG, QD
     Route: 058
     Dates: start: 20100915

REACTIONS (12)
  - BACK PAIN [None]
  - PAIN IN EXTREMITY [None]
  - MYOCARDIAL INFARCTION [None]
  - FLATULENCE [None]
  - OVERDOSE [None]
  - NAUSEA [None]
  - OFF LABEL USE [None]
  - ABDOMINAL DISCOMFORT [None]
  - CARDIAC PACEMAKER INSERTION [None]
  - SPINAL PAIN [None]
  - ARTHRALGIA [None]
  - SENSORY DISTURBANCE [None]
